FAERS Safety Report 19952015 (Version 2)
Quarter: 2021Q4

REPORT INFORMATION
  Report Type: Report from Study
  Country: US (occurrence: US)
  Receive Date: 20211013
  Receipt Date: 20211025
  Transmission Date: 20220303
  Serious: Yes (Life-Threatening, Hospitalization)
  Sender: FDA-Public Use
  Company Number: US-ALKERMES INC.-ALK-2021-005281

PATIENT
  Age: 26 Year
  Sex: Female

DRUGS (13)
  1. VIVITROL [Suspect]
     Active Substance: NALTREXONE
     Indication: Drug use disorder
     Dosage: DRUG NOT GIVEN
  2. BUPRENORPHINE [Suspect]
     Active Substance: BUPRENORPHINE
     Indication: Drug use disorder
     Dosage: 2 MILLIGRAM, ONE TIME DOSE
     Route: 048
     Dates: start: 20210910, end: 20210910
  3. BUPRENORPHINE [Suspect]
     Active Substance: BUPRENORPHINE
     Dosage: 4 MILLIGRAM, ONE TIME DOSE
     Route: 048
     Dates: start: 20210909, end: 20210909
  4. NALTREXONE [Suspect]
     Active Substance: NALTREXONE
     Indication: Drug use disorder
     Dosage: DRUG NOT GIVEN
     Route: 048
  5. PROCHLORPERAZINE [Concomitant]
     Active Substance: PROCHLORPERAZINE
     Indication: Withdrawal syndrome
     Dosage: UNK
     Route: 065
  6. TRAZODONE [Concomitant]
     Active Substance: TRAZODONE HYDROCHLORIDE
     Indication: Withdrawal syndrome
     Dosage: UNK
     Route: 065
  7. IBUPROFEN [Concomitant]
     Active Substance: IBUPROFEN
     Indication: Withdrawal syndrome
     Dosage: UNK
     Route: 065
  8. CLONIDINE [Concomitant]
     Active Substance: CLONIDINE
     Indication: Withdrawal syndrome
     Dosage: 0.1 MILLIGRAM, ONE TIME DOSE
     Route: 048
     Dates: start: 20210910, end: 20210910
  9. CLONIDINE [Concomitant]
     Active Substance: CLONIDINE
     Dosage: 0.4 MILLIGRAM, ONE TIME DOSE
     Route: 048
     Dates: start: 20210909, end: 20210909
  10. CLONIDINE [Concomitant]
     Active Substance: CLONIDINE
     Dosage: 0.3 MILLIGRAM, ONE TIME DOSE
     Route: 048
     Dates: start: 20210908, end: 20210908
  11. CLONAZEPAM [Concomitant]
     Active Substance: CLONAZEPAM
     Indication: Withdrawal syndrome
     Dosage: 1 MILLIGRAM, ONE TIME DOSE
     Route: 048
     Dates: start: 20210910, end: 20210910
  12. CLONAZEPAM [Concomitant]
     Active Substance: CLONAZEPAM
     Dosage: 2 MILLIGRAM, ONE TIME DOSE
     Route: 048
     Dates: start: 20210909, end: 20210909
  13. CLONAZEPAM [Concomitant]
     Active Substance: CLONAZEPAM
     Dosage: 2 MILLIGRAM, ONE TIME DOSE
     Route: 048
     Dates: start: 20210908, end: 20210908

REACTIONS (1)
  - Overdose [Recovered/Resolved]

NARRATIVE: CASE EVENT DATE: 20210916
